FAERS Safety Report 9127079 (Version 1)
Quarter: 2013Q1

REPORT INFORMATION
  Report Type: Spontaneous
  Country: GB (occurrence: GB)
  Receive Date: 20130228
  Receipt Date: 20130228
  Transmission Date: 20140127
  Serious: Yes (Hospitalization)
  Sender: FDA-Public Use
  Company Number: PHFR2013GB001370

PATIENT
  Age: 27 Year
  Sex: Male
  Weight: 82.55 kg

DRUGS (7)
  1. CLOZAPINE [Suspect]
     Indication: PSYCHOTIC DISORDER
     Dosage: 250 MG, QD
     Route: 048
     Dates: start: 20121212
  2. CLOZAPINE [Suspect]
     Dosage: UNK UKN, UNK
  3. DULOXETINE [Suspect]
     Indication: DEPRESSION
     Dosage: 120 MG, UNK
     Route: 048
     Dates: start: 2012
  4. DULOXETINE [Suspect]
     Dosage: UNK UKN, UNK
     Dates: end: 201302
  5. OLANZAPINE [Concomitant]
  6. SALBUTAMOL [Concomitant]
  7. ZOPICLONE [Concomitant]

REACTIONS (3)
  - Drug interaction [Unknown]
  - Somnolence [Unknown]
  - Antipsychotic drug level increased [Recovering/Resolving]
